FAERS Safety Report 15096907 (Version 1)
Quarter: 2018Q3

REPORT INFORMATION
  Report Type: Spontaneous
  Country: IT (occurrence: IT)
  Receive Date: 20180702
  Receipt Date: 20180702
  Transmission Date: 20181010
  Serious: Yes (Other)
  Sender: FDA-Public Use
  Company Number: IT-AMGEN-ITASP2018086841

PATIENT
  Age: 80 Year
  Sex: Female

DRUGS (4)
  1. FEMARA [Concomitant]
     Active Substance: LETROZOLE
     Indication: BREAST CANCER
  2. ENAPREN [Concomitant]
     Active Substance: ENALAPRIL MALEATE
  3. LASITONE [Concomitant]
     Active Substance: FUROSEMIDE\SPIRONOLACTONE
  4. XGEVA [Suspect]
     Active Substance: DENOSUMAB
     Indication: METASTASES TO BONE
     Dosage: 120 MG (CYCLICAL), UNK
     Route: 058
     Dates: start: 20131113, end: 20150610

REACTIONS (1)
  - Osteonecrosis of jaw [Recovered/Resolved]

NARRATIVE: CASE EVENT DATE: 20150717
